FAERS Safety Report 12803540 (Version 1)
Quarter: 2016Q4

REPORT INFORMATION
  Report Type: Spontaneous
  Country: FI (occurrence: FI)
  Receive Date: 20161003
  Receipt Date: 20161003
  Transmission Date: 20170207
  Serious: Yes (Hospitalization)
  Sender: FDA-Public Use
  Company Number: FI-HERITAGE PHARMACEUTICALS-2016HTG00238

PATIENT
  Age: 44 Year
  Sex: Female

DRUGS (2)
  1. ACYCLOVIR. [Suspect]
     Active Substance: ACYCLOVIR
     Indication: ORAL HERPES
     Dosage: 200 MG, 5X/DAY
     Route: 048
  2. ZOVIRAX [Suspect]
     Active Substance: ACYCLOVIR
     Indication: ORAL HERPES
     Dosage: UNK
     Route: 061

REACTIONS (1)
  - Acute generalised exanthematous pustulosis [Unknown]
